FAERS Safety Report 9261324 (Version 1)
Quarter: 2013Q2

REPORT INFORMATION
  Report Type: Spontaneous
  Country: US (occurrence: US)
  Receive Date: 20130429
  Receipt Date: 20130429
  Transmission Date: 20140414
  Serious: Yes (Other)
  Sender: FDA-Public Use
  Company Number: US-009507513-2011SP047471

PATIENT
  Age: 58 Year
  Sex: Male
  Weight: 81.63 kg

DRUGS (16)
  1. VICTRELIS [Suspect]
     Indication: HEPATITIS C
     Dosage: 400 MG, Q8H
     Route: 048
     Dates: start: 20111004
  2. VICTRELIS [Suspect]
     Dosage: 200 MG, TID
     Route: 048
  3. PEGASYS [Suspect]
     Indication: HEPATITIS C
     Dosage: 180 ?G, QM
     Route: 065
  4. MK-8908 [Suspect]
     Indication: HEPATITIS C
     Dosage: 200 MG, UNKNOWN
  5. FLAXSEED [Concomitant]
     Indication: PRODUCT USED FOR UNKNOWN INDICATION
     Dosage: UPDATE (08NOV2011)
     Route: 065
  6. CALCIUM (UNSPECIFIED) (+) MAGNESIUM (UNSPECIFIED) [Concomitant]
     Indication: PRODUCT USED FOR UNKNOWN INDICATION
     Dosage: UNK UNK, UNKNOWN
     Route: 065
  7. CHOLECALCIFEROL [Concomitant]
     Indication: PRODUCT USED FOR UNKNOWN INDICATION
     Dosage: 1000 UNIT
     Route: 065
  8. THIAMINE HYDROCHLORIDE [Concomitant]
     Indication: PRODUCT USED FOR UNKNOWN INDICATION
     Dosage: UNK UNK, UNKNOWN
     Route: 065
  9. OMEGA-3 MARINE TRIGLYCERIDES [Concomitant]
     Indication: PRODUCT USED FOR UNKNOWN INDICATION
     Dosage: UNK UNK, UNKNOWN
     Route: 065
  10. PRILOSEC [Concomitant]
     Indication: PRODUCT USED FOR UNKNOWN INDICATION
     Dosage: UNK UNK, UNKNOWN
     Route: 065
  11. MIRTAZAPINE [Concomitant]
     Indication: PRODUCT USED FOR UNKNOWN INDICATION
     Dosage: UPDATE (08NOV2011)
     Route: 065
  12. LEXAPRO [Concomitant]
     Indication: PRODUCT USED FOR UNKNOWN INDICATION
     Dosage: UPDATE (08NOV2011)
     Route: 065
  13. LORAZEPAM [Concomitant]
     Indication: PRODUCT USED FOR UNKNOWN INDICATION
     Dosage: UPDATE (08NOV2011)
     Route: 065
  14. LISINOPRIL [Concomitant]
     Indication: PRODUCT USED FOR UNKNOWN INDICATION
     Dosage: UPDATE (08NOV2011)
     Route: 065
  15. PRILOSEC [Concomitant]
     Indication: PRODUCT USED FOR UNKNOWN INDICATION
     Dosage: UPDATE (08NOV2011)40MG
     Route: 065
  16. CALCIUM (UNSPECIFIED) (+) MAGNESIUM (UNSPECIFIED) (+) ZINC (UNSPECIFIE [Concomitant]
     Indication: PRODUCT USED FOR UNKNOWN INDICATION
     Dosage: UPDATE (08NOV2011)
     Route: 065

REACTIONS (22)
  - Hepatocellular carcinoma [Unknown]
  - Nausea [Unknown]
  - Dry mouth [Unknown]
  - Underdose [Unknown]
  - Iron deficiency anaemia [Unknown]
  - Fatigue [Unknown]
  - Nephrolithiasis [Not Recovered/Not Resolved]
  - Splenomegaly [Unknown]
  - Urinary tract infection [Unknown]
  - Cystitis interstitial [Unknown]
  - Prostatomegaly [Unknown]
  - Urethral stenosis [Unknown]
  - Atelectasis [Unknown]
  - Arteriosclerosis coronary artery [Unknown]
  - Hepatocellular carcinoma [Unknown]
  - Diverticulum intestinal [Unknown]
  - Carpal tunnel syndrome [Unknown]
  - Tinea cruris [Unknown]
  - Haemorrhoids [Unknown]
  - Polyp [Unknown]
  - Mass [Unknown]
  - Hypertension [Unknown]
